FAERS Safety Report 15820486 (Version 1)
Quarter: 2018Q4

REPORT INFORMATION
  Report Type: Spontaneous
  Country: US (occurrence: US)
  Receive Date: 20181217
  Receipt Date: 20181217
  Transmission Date: 20190205
  Serious: No
  Sender: FDA-Public Use
  Company Number: None

PATIENT
  Sex: Female

DRUGS (1)
  1. AFINITOR [Suspect]
     Active Substance: EVEROLIMUS
     Indication: METASTASIS
     Route: 048
     Dates: start: 20181120

REACTIONS (5)
  - Dry skin [None]
  - Dysgeusia [None]
  - Eczema [None]
  - Acne [None]
  - Oral discomfort [None]
